FAERS Safety Report 9459840 (Version 1)
Quarter: 2013Q3

REPORT INFORMATION
  Report Type: Spontaneous
  Country: CO (occurrence: CO)
  Receive Date: 20130815
  Receipt Date: 20130815
  Transmission Date: 20140515
  Serious: Yes (Hospitalization)
  Sender: FDA-Public Use
  Company Number: CO-PFIZER INC-2013236685

PATIENT
  Age: 61 Year
  Sex: Female

DRUGS (3)
  1. LYRICA [Suspect]
     Indication: HEADACHE
     Dosage: 75 MG, UNK
     Route: 048
     Dates: end: 201212
  2. IMIPRAMINE [Concomitant]
     Dosage: UNK
     Route: 048
  3. SPIRONOLACTONE [Concomitant]
     Dosage: UNK
     Route: 048

REACTIONS (4)
  - Off label use [Unknown]
  - Headache [Unknown]
  - Poisoning [Unknown]
  - Memory impairment [Unknown]
